FAERS Safety Report 8573040-9 (Version None)
Quarter: 2012Q3

REPORT INFORMATION
  Report Type: 
  Country: None (occurrence: None)
  Receive Date: 20120806
  Receipt Date: 20120729
  Transmission Date: 20120928
  Serious: Yes (Hospitalization)
  Sender: FDA-Public Use
  Company Number: US-PFIZER INC-2012185562

PATIENT
  Age: 66 Year
  Sex: Female

DRUGS (1)
  1. PHENYTOIN [Suspect]
     Indication: CONVULSION PROPHYLAXIS
     Dosage: UNK

REACTIONS (5)
  - MULTI-ORGAN FAILURE [None]
  - HYPERSENSITIVITY [None]
  - PYREXIA [None]
  - EOSINOPHILIA [None]
  - MENTAL STATUS CHANGES [None]
